FAERS Safety Report 5093321-3 (Version None)
Quarter: 2006Q3

REPORT INFORMATION
  Report Type: 
  Country: None (occurrence: None)
  Receive Date: 20060828
  Receipt Date: 20060815
  Transmission Date: 20061208
  Serious: Yes (Other)
  Sender: FDA-Public Use
  Company Number: 2006100499

PATIENT
  Sex: Male

DRUGS (3)
  1. DEPO-MEDROL [Suspect]
     Indication: DRUG USE FOR UNKNOWN INDICATION
     Dosage: 40 MG
     Dates: start: 20060707, end: 20060707
  2. MARCAINE [Suspect]
     Indication: DRUG USE FOR UNKNOWN INDICATION
     Dates: start: 20060707, end: 20060707
  3. DICLOFENAC SODIUM [Concomitant]

REACTIONS (4)
  - ANAPHYLACTIC REACTION [None]
  - COUGH [None]
  - NAUSEA [None]
  - VOMITING [None]
